FAERS Safety Report 11312076 (Version 2)
Quarter: 2015Q4

REPORT INFORMATION
  Report Type: Spontaneous
  Country: US (occurrence: US)
  Receive Date: 20150727
  Receipt Date: 20151113
  Transmission Date: 20160304
  Serious: Yes (Hospitalization)
  Sender: FDA-Public Use
  Company Number: US-SA-2015SA109845

PATIENT
  Age: 18 Year
  Sex: Male
  Weight: 76.2 kg

DRUGS (1)
  1. CEREZYME [Suspect]
     Active Substance: IMIGLUCERASE
     Indication: GAUCHER^S DISEASE
     Dosage: DOSE:62.99 UNIT(S)/KILOGRAM BODYWEIGHT
     Route: 041
     Dates: start: 20100413

REACTIONS (2)
  - Respiratory disorder [Unknown]
  - Pneumonia aspiration [Unknown]

NARRATIVE: CASE EVENT DATE: 20150723
